FAERS Safety Report 10488675 (Version 1)
Quarter: 2014Q4

REPORT INFORMATION
  Report Type: Spontaneous
  Country: US (occurrence: None)
  Receive Date: 20141001
  Receipt Date: 20141001
  Transmission Date: 20150528
  Serious: No
  Sender: FDA-Public Use
  Company Number: None

PATIENT
  Age: 55 Year
  Sex: Female
  Weight: 71.22 kg

DRUGS (2)
  1. VALACYCLOVIR [Suspect]
     Active Substance: VALACYCLOVIR HYDROCHLORIDE
     Indication: HERPES SIMPLEX
     Dosage: ONE PO TID X 3D PRN FLARE?THEN ONE PO QD FOR SUPPRESSION
     Route: 048
  2. VALACYCLOVIR [Suspect]
     Active Substance: VALACYCLOVIR HYDROCHLORIDE
     Dosage: ONE PO TID X 3D PRN FLARE?THEN ONE PO QD FOR SUPPRESSION
     Route: 048

REACTIONS (2)
  - Genital herpes [None]
  - Condition aggravated [None]
